FAERS Safety Report 10652782 (Version 1)
Quarter: 2014Q4

REPORT INFORMATION
  Report Type: Spontaneous
  Country: US (occurrence: US)
  Receive Date: 20141215
  Receipt Date: 20141215
  Transmission Date: 20150529
  Serious: Yes (Hospitalization)
  Sender: FDA-Public Use
  Company Number: US-RB PHARMACEUTICALS LIMITED-RB-74136-2014

PATIENT
  Age: 58 Year
  Sex: Male

DRUGS (3)
  1. SUBOXONE [Suspect]
     Active Substance: BUPRENORPHINE HYDROCHLORIDE\NALOXONE HYDROCHLORIDE
     Indication: DRUG DEPENDENCE
     Dosage: INITIAL DOSE: 8MG, DAILY
     Route: 065
  2. SUBOXONE [Suspect]
     Active Substance: BUPRENORPHINE HYDROCHLORIDE\NALOXONE HYDROCHLORIDE
     Dosage: TAPERED TO 4MG, DAILY
     Route: 065
  3. SUBOXONE [Suspect]
     Active Substance: BUPRENORPHINE HYDROCHLORIDE\NALOXONE HYDROCHLORIDE
     Dosage: ON DAY 2: TITRATED TO 12MG, DAILY
     Route: 065

REACTIONS (6)
  - Condition aggravated [Recovering/Resolving]
  - Suprapubic pain [Unknown]
  - Bladder dilatation [Recovering/Resolving]
  - Drug withdrawal syndrome [Unknown]
  - Urinary retention [Recovered/Resolved]
  - Benign prostatic hyperplasia [Recovering/Resolving]
